FAERS Safety Report 25127574 (Version 1)
Quarter: 2025Q1

REPORT INFORMATION
  Report Type: Spontaneous
  Country: CN (occurrence: CN)
  Receive Date: 20250327
  Receipt Date: 20250327
  Transmission Date: 20250409
  Serious: Yes (Death)
  Sender: PHARMACOSMOS A/S
  Company Number: CN-NEBO-690513

PATIENT

DRUGS (2)
  1. IRON ISOMALTOSIDE 1000 [Suspect]
     Active Substance: IRON ISOMALTOSIDE 1000
     Indication: Product used for unknown indication
     Dates: start: 20250317, end: 20250317
  2. ALBUMIN HUMAN [Concomitant]
     Active Substance: ALBUMIN HUMAN
     Dates: start: 20250317, end: 20250317

REACTIONS (1)
  - Tremor [Fatal]

NARRATIVE: CASE EVENT DATE: 20250317
